FAERS Safety Report 6848594-0 (Version None)
Quarter: 2010Q3

REPORT INFORMATION
  Report Type: 
  Country: None (occurrence: None)
  Receive Date: 20100716
  Receipt Date: 20100714
  Transmission Date: 20110219
  Serious: Yes (Death)
  Sender: FDA-Public Use
  Company Number: US-BRISTOL-MYERS SQUIBB COMPANY-15191257

PATIENT
  Age: 77 Year
  Sex: Male

DRUGS (13)
  1. WARFARIN SODIUM [Suspect]
  2. LISINOPRIL [Suspect]
  3. SIMVASTATIN [Suspect]
  4. METOPROLOL [Suspect]
  5. ALLOPURINOL [Suspect]
  6. GLIPIZIDE [Suspect]
  7. CITALOPRAM HYDROBROMIDE [Suspect]
  8. DIGOXIN [Suspect]
  9. LEVOTHYROXINE SODIUM [Suspect]
  10. OMEPRAZOLE [Suspect]
  11. COLCHICINE [Suspect]
  12. FUROSEMIDE [Suspect]
  13. NAMENDA [Suspect]

REACTIONS (1)
  - DEATH [None]
